FAERS Safety Report 8299385-8 (Version None)
Quarter: 2012Q2

REPORT INFORMATION
  Report Type: 
  Country: None (occurrence: None)
  Receive Date: 20120419
  Receipt Date: 20120411
  Transmission Date: 20120825
  Serious: Yes (Other)
  Sender: FDA-Public Use
  Company Number: US-PFIZER INC-2012062044

PATIENT
  Sex: Female
  Weight: 48.073 kg

DRUGS (4)
  1. XALATAN [Suspect]
     Indication: GLAUCOMA
     Dosage: UNK, DAILY
  2. PILOCARPINE [Concomitant]
     Indication: EYE DISORDER
     Dosage: UNK
  3. BRIMONIDINE [Concomitant]
     Indication: EYE DISORDER
     Dosage: UNK
  4. AZOPT [Concomitant]
     Indication: EYE DISORDER
     Dosage: UNK

REACTIONS (6)
  - CATARACT [None]
  - BACK DISORDER [None]
  - VISION BLURRED [None]
  - EYE DISCHARGE [None]
  - DRUG INEFFECTIVE [None]
  - EYE DISORDER [None]
